FAERS Safety Report 6852126-0 (Version None)
Quarter: 2010Q3

REPORT INFORMATION
  Report Type: 
  Country: None (occurrence: None)
  Receive Date: 20100717
  Receipt Date: 20071108
  Transmission Date: 20110219
  Serious: No
  Sender: FDA-Public Use
  Company Number: US-PFIZER INC-2007095421

PATIENT
  Sex: Female
  Weight: 68.2 kg

DRUGS (4)
  1. CHANTIX [Suspect]
     Indication: SMOKING CESSATION THERAPY
     Dates: start: 20071106
  2. IBUPROFEN [Concomitant]
  3. PENICILLINE [Concomitant]
     Indication: STREPTOCOCCAL INFECTION
  4. CEPHALEXIN [Concomitant]
     Indication: STREPTOCOCCAL INFECTION

REACTIONS (2)
  - ABNORMAL DREAMS [None]
  - INSOMNIA [None]
